FAERS Safety Report 22098474 (Version 1)
Quarter: 2023Q1

REPORT INFORMATION
  Report Type: Spontaneous
  Country: US (occurrence: US)
  Receive Date: 20230315
  Receipt Date: 20230315
  Transmission Date: 20230418
  Serious: Yes (Other)
  Sender: FDA-Public Use
  Company Number: US-INCYTE CORPORATION-2023IN002500

PATIENT

DRUGS (1)
  1. PEMAZYRE [Suspect]
     Active Substance: PEMIGATINIB
     Indication: Cholangiocarcinoma
     Dosage: UNK
     Route: 065

REACTIONS (5)
  - Cholangiocarcinoma [Unknown]
  - Oral toxicity [Recovering/Resolving]
  - Disease progression [Unknown]
  - Nail toxicity [Unknown]
  - Dry mouth [Unknown]
